FAERS Safety Report 9713373 (Version 1)
Quarter: 2013Q4

REPORT INFORMATION
  Report Type: Spontaneous
  Country: US (occurrence: None)
  Receive Date: 20131125
  Receipt Date: 20131125
  Transmission Date: 20140711
  Serious: No
  Sender: FDA-Public Use
  Company Number: None

PATIENT
  Age: 74 Year
  Sex: Male
  Weight: 92.53 kg

DRUGS (14)
  1. SUCCINYLCHOLINE [Suspect]
     Indication: SURGERY
     Route: 042
  2. ULTANE [Concomitant]
  3. PROPOFOL [Concomitant]
  4. ALFENTANIL [Concomitant]
  5. VERSED [Concomitant]
  6. LIDOCAINE [Concomitant]
  7. GLYCOPYRROLATE [Concomitant]
  8. ONDANSETRON [Concomitant]
  9. METOCLOPRAMIDE [Concomitant]
  10. EPHEDRINE [Concomitant]
  11. LACTATED RINGERS [Concomitant]
  12. CEFAZOLIN [Concomitant]
  13. MARCAINE [Concomitant]
  14. SALINE [Concomitant]

REACTIONS (3)
  - Pain [None]
  - Myalgia [None]
  - Arthralgia [None]
